FAERS Safety Report 9601922 (Version 5)
Quarter: 2014Q1

REPORT INFORMATION
  Report Type: Report from Study
  Country: US (occurrence: US)
  Receive Date: 20131007
  Receipt Date: 20140207
  Transmission Date: 20141002
  Serious: Yes (Life-Threatening, Hospitalization, Other)
  Sender: FDA-Public Use
  Company Number: US-JNJFOC-20131002074

PATIENT
  Age: 58 Year
  Sex: Female

DRUGS (7)
  1. STELARA [Suspect]
     Indication: PSORIASIS
     Route: 058
     Dates: start: 20110614, end: 20130710
  2. WELLBUTRIN [Concomitant]
     Indication: DEPRESSION
     Route: 065
  3. ATORVASTATIN [Concomitant]
     Indication: BLOOD CHOLESTEROL INCREASED
     Route: 048
  4. SYNTHROID [Concomitant]
     Indication: HYPOTHYROIDISM
     Route: 048
  5. METFORMIN [Concomitant]
     Route: 048
  6. SOLIWAX [Concomitant]
     Route: 061
  7. TRIAMCINOLONE [Concomitant]
     Route: 061

REACTIONS (1)
  - Papillary thyroid cancer [Recovering/Resolving]
